FAERS Safety Report 9547453 (Version 1)
Quarter: 2013Q3

REPORT INFORMATION
  Report Type: Spontaneous
  Country: US (occurrence: None)
  Receive Date: 20130920
  Receipt Date: 20130920
  Transmission Date: 20140515
  Serious: Yes (Other)
  Sender: FDA-Public Use
  Company Number: DSU-2013-04521

PATIENT
  Age: 80 Year
  Sex: Male

DRUGS (3)
  1. BENICAR [Suspect]
     Indication: HYPERTENSION
     Route: 048
     Dates: start: 2012
  2. AMLODIPINE [Suspect]
     Indication: HYPERTENSION
     Dosage: UNKNOWN
     Dates: start: 2012, end: 201309
  3. CRESTOR [Suspect]

REACTIONS (6)
  - Hypertension [None]
  - Heart rate increased [None]
  - Hypotension [None]
  - Syncope [None]
  - Dizziness [None]
  - Fluid retention [None]
